FAERS Safety Report 4310102-6 (Version None)
Quarter: 2004Q1

REPORT INFORMATION
  Report Type: 
  Country: None (occurrence: None)
  Receive Date: 20040301
  Receipt Date: 20031201
  Transmission Date: 20041129
  Serious: No
  Sender: FDA-Public Use
  Company Number: WAES0312USA00178

PATIENT
  Age: 68 Year
  Sex: Male

DRUGS (3)
  1. ZETIA [Suspect]
     Indication: HYPERCHOLESTEROLAEMIA
     Dosage: 10 MG/DAILY/PO
     Route: 048
  2. NORVASC [Concomitant]
  3. ASPIRIN [Concomitant]

REACTIONS (2)
  - ABDOMINAL DISTENSION [None]
  - MUSCLE CRAMP [None]
